FAERS Safety Report 4939017-7 (Version None)
Quarter: 2006Q1

REPORT INFORMATION
  Report Type: 
  Country: None (occurrence: None)
  Receive Date: 20060309
  Receipt Date: 20060118
  Transmission Date: 20060701
  Serious: Yes (Hospitalization)
  Sender: FDA-Public Use
  Company Number: US-MERCK-0601USA02128

PATIENT
  Age: 69 Year
  Sex: Male
  Weight: 97 kg

DRUGS (6)
  1. VYTORIN [Suspect]
     Indication: BLOOD CHOLESTEROL INCREASED
     Route: 048
     Dates: start: 20060118
  2. VYTORIN [Suspect]
     Route: 048
     Dates: start: 20050728, end: 20050929
  3. AVANDIA [Concomitant]
     Indication: DIABETES MELLITUS
     Route: 048
     Dates: start: 20020101
  4. NEXIUM [Concomitant]
     Indication: GASTROOESOPHAGEAL REFLUX DISEASE
     Route: 048
     Dates: start: 20040101
  5. FOLTX [Concomitant]
     Indication: BLOOD HOMOCYSTEINE INCREASED
     Route: 048
     Dates: start: 20030101
  6. LIBRAX CAPSULES [Concomitant]
     Indication: IRRITABLE BOWEL SYNDROME
     Route: 048
     Dates: start: 20030101

REACTIONS (5)
  - ALANINE AMINOTRANSFERASE INCREASED [None]
  - ASPARTATE AMINOTRANSFERASE INCREASED [None]
  - GASTRITIS [None]
  - OESOPHAGITIS [None]
  - PANCREATITIS [None]
